FAERS Safety Report 24235961 (Version 5)
Quarter: 2024Q4

REPORT INFORMATION
  Report Type: Spontaneous
  Country: CN (occurrence: CN)
  Receive Date: 20240822
  Receipt Date: 20241107
  Transmission Date: 20250115
  Serious: Yes (Death, Hospitalization, Other)
  Sender: NOVO NORDISK
  Company Number: CN-NOVOPROD-1268189

PATIENT
  Age: 42 Year
  Sex: Male
  Weight: 80 kg

DRUGS (6)
  1. OZEMPIC [Suspect]
     Active Substance: SEMAGLUTIDE
     Dosage: 1 MG
  2. OZEMPIC [Suspect]
     Active Substance: SEMAGLUTIDE
     Dosage: 1 MG
  3. OZEMPIC [Suspect]
     Active Substance: SEMAGLUTIDE
     Dosage: 1 MG
     Dates: start: 20240717
  4. OZEMPIC [Suspect]
     Active Substance: SEMAGLUTIDE
     Dosage: 1MG
     Dates: end: 20240727
  5. OZEMPIC [Suspect]
     Active Substance: SEMAGLUTIDE
     Indication: Weight control
     Dosage: UNK
     Dates: start: 20240717
  6. OZEMPIC [Suspect]
     Active Substance: SEMAGLUTIDE
     Dosage: 1 MG

REACTIONS (25)
  - Acute kidney injury [Fatal]
  - Metabolic acidosis [Fatal]
  - Lactic acidosis [Fatal]
  - General physical health deterioration [Unknown]
  - Septic shock [Unknown]
  - Abdominal infection [Unknown]
  - Intra-abdominal fluid collection [Unknown]
  - Multiple organ dysfunction syndrome [Unknown]
  - Pneumoperitoneum [Unknown]
  - Respiratory failure [Unknown]
  - Pneumonia [Unknown]
  - Pleural effusion [Unknown]
  - Myocardial injury [Unknown]
  - Coagulopathy [Unknown]
  - Stress ulcer [Unknown]
  - Hypoproteinaemia [Unknown]
  - Hyponatraemia [Unknown]
  - Hypocalcaemia [Unknown]
  - Sinus tachycardia [Unknown]
  - Nausea [Unknown]
  - Vomiting [Unknown]
  - Pleural thickening [Unknown]
  - Retching [Unknown]
  - Product use in unapproved indication [Unknown]
  - Inappropriate schedule of product administration [Unknown]

NARRATIVE: CASE EVENT DATE: 20240720
